FAERS Safety Report 4347308-6 (Version None)
Quarter: 2004Q2

REPORT INFORMATION
  Report Type: 
  Country: None (occurrence: None)
  Receive Date: 20040426
  Receipt Date: 20040426
  Transmission Date: 20050107
  Serious: Yes (Other)
  Sender: FDA-Public Use
  Company Number: None

PATIENT
  Age: 53 Year
  Sex: Male
  Weight: 83.9154 kg

DRUGS (8)
  1. LEXAPRO [Suspect]
     Indication: DEPRESSION
     Dosage: 20 MILLIGRAM ORAL
     Route: 048
  2. MULTI-VITAMIN [Concomitant]
  3. VIT C [Concomitant]
  4. VITAMIN E [Concomitant]
  5. MAGNESIUM [Concomitant]
  6. SOYA LECITHIN [Concomitant]
  7. PROSTATE-VITAMIN/HERB SUPPLEMENT [Concomitant]
  8. ASPIRIN [Concomitant]

REACTIONS (2)
  - HEART RATE IRREGULAR [None]
  - PALPITATIONS [None]
